FAERS Safety Report 17505636 (Version 1)
Quarter: 2020Q1

REPORT INFORMATION
  Report Type: Report from Study
  Country: None (occurrence: US)
  Receive Date: 20200306
  Receipt Date: 20200306
  Transmission Date: 20200409
  Serious: Yes (Death)
  Sender: FDA-Public Use
  Company Number: US-ABBVIE-20K-163-3307163-00

PATIENT
  Age: 83 Year
  Sex: Male

DRUGS (4)
  1. VENCLEXTA [Suspect]
     Active Substance: VENETOCLAX
     Dosage: MOST RECENT TREATMENT: 14-AUG-2019
     Route: 048
  2. VENCLEXTA [Suspect]
     Active Substance: VENETOCLAX
     Indication: PANCYTOPENIA
     Dosage: TWO TABLET ON DAY TWO
     Route: 048
  3. VENCLEXTA [Suspect]
     Active Substance: VENETOCLAX
     Indication: MYELODYSPLASTIC SYNDROME
     Dosage: ONE TABLET ON DAY ONE
     Route: 048
  4. VENCLEXTA [Suspect]
     Active Substance: VENETOCLAX
     Dosage: FOUR TABLETS BY MOUTH EVERY DAY
     Route: 048

REACTIONS (2)
  - Off label use [Unknown]
  - Death [Fatal]

NARRATIVE: CASE EVENT DATE: 20190901
